FAERS Safety Report 6699337-5 (Version None)
Quarter: 2010Q2

REPORT INFORMATION
  Report Type: 
  Country: None (occurrence: None)
  Receive Date: 20100427
  Receipt Date: 20100420
  Transmission Date: 20101027
  Serious: Yes (Hospitalization, Other)
  Sender: FDA-Public Use
  Company Number: SA-NOVOPROD-306301

PATIENT
  Sex: Female
  Weight: 30 kg

DRUGS (2)
  1. INSULIN DETEMIR FLEXPEN [Suspect]
     Indication: DIABETES MELLITUS
     Dosage: 12 IU, QD
     Route: 058
     Dates: start: 20080810
  2. NOVORAPID FLEXPEN [Suspect]
     Indication: DIABETES MELLITUS
     Dosage: 10 IU, QD
     Route: 058
     Dates: start: 20080810

REACTIONS (2)
  - CONVULSION [None]
  - HYPOGLYCAEMIC SEIZURE [None]
